FAERS Safety Report 6417016-6 (Version None)
Quarter: 2009Q4

REPORT INFORMATION
  Report Type: 
  Country: None (occurrence: None)
  Receive Date: 20091020
  Receipt Date: 20091007
  Transmission Date: 20100525
  Serious: Yes (Hospitalization)
  Sender: FDA-Public Use
  Company Number: THYM-1001153

PATIENT
  Age: 9 Year
  Sex: Male
  Weight: 38 kg

DRUGS (4)
  1. THYMOGLOBULIN [Suspect]
     Indication: APLASTIC ANAEMIA
     Dosage: 140 MG, QD, INTRAVENOUS
     Route: 042
     Dates: start: 20090728, end: 20090801
  2. CYCLOSPORINE [Concomitant]
  3. METHYLPREDNISOLONE [Concomitant]
  4. ACETAMINOPHEN [Concomitant]

REACTIONS (5)
  - DIARRHOEA [None]
  - EAR PAIN [None]
  - HEARING IMPAIRED [None]
  - PYREXIA [None]
  - TINNITUS [None]
